FAERS Safety Report 19744785 (Version 1)
Quarter: 2021Q3

REPORT INFORMATION
  Report Type: Spontaneous
  Country: BE (occurrence: BE)
  Receive Date: 20210825
  Receipt Date: 20210825
  Transmission Date: 20211014
  Serious: Yes (Other)
  Sender: FDA-Public Use
  Company Number: BE-MYLANLABS-2021M1054462

PATIENT
  Age: 53 Year
  Sex: Female

DRUGS (3)
  1. RIBOCICLIB. [Suspect]
     Active Substance: RIBOCICLIB
     Indication: BREAST CANCER FEMALE
     Dosage: UNK
  2. LETROZOLE. [Suspect]
     Active Substance: LETROZOLE
     Indication: BREAST CANCER FEMALE
     Dosage: UNK
  3. GOSERELIN [Suspect]
     Active Substance: GOSERELIN
     Indication: BREAST CANCER FEMALE
     Dosage: UNKNOWN, DEPOT
     Route: 058

REACTIONS (16)
  - Disturbance in attention [Unknown]
  - Therapy cessation [Unknown]
  - Metastases to lung [Unknown]
  - Hot flush [Unknown]
  - Arthralgia [Unknown]
  - Sleep deficit [Unknown]
  - Sexual dysfunction [Unknown]
  - Neutropenia [Unknown]
  - Asthenia [Unknown]
  - Metastases to bone [Unknown]
  - Metastases to liver [Unknown]
  - Stress [Unknown]
  - White blood cell count decreased [Unknown]
  - Tumour marker increased [Unknown]
  - Metastases to ovary [Unknown]
  - Cognitive disorder [Unknown]
